FAERS Safety Report 9677461 (Version 1)
Quarter: 2013Q4

REPORT INFORMATION
  Report Type: Spontaneous
  Country: FR (occurrence: FR)
  Receive Date: 20131108
  Receipt Date: 20131108
  Transmission Date: 20140711
  Serious: Yes (Life-Threatening)
  Sender: FDA-Public Use
  Company Number: FR-ASTRAZENECA-2013SE81823

PATIENT
  Age: 3725 Week
  Sex: Female

DRUGS (8)
  1. MOPRAL [Suspect]
     Route: 048
  2. TEGRETOL [Interacting]
     Route: 065
  3. TEGRETOL [Interacting]
     Dosage: SR
     Route: 065
  4. PRADAXA [Interacting]
     Indication: ATRIAL FIBRILLATION
     Route: 048
     Dates: start: 201303
  5. AMLOR [Concomitant]
  6. PARACETAMOL [Concomitant]
  7. KEPPRA [Concomitant]
  8. ATENOLOL [Concomitant]

REACTIONS (2)
  - Drug interaction [Unknown]
  - Deep vein thrombosis [Unknown]
